FAERS Safety Report 9036584 (Version 1)
Quarter: 2013Q1

REPORT INFORMATION
  Report Type: Spontaneous
  Country: US (occurrence: None)
  Receive Date: 20130117
  Receipt Date: 20130117
  Transmission Date: 20140127
  Serious: Yes (Other)
  Sender: FDA-Public Use
  Company Number: None

PATIENT
  Age: 65 Year
  Sex: Female
  Weight: 67.13 kg

DRUGS (2)
  1. PROLIA 60 MG SQ EVERY 6 MONTHS AMGEN [Suspect]
  2. PROLIA 60 MG SQ EVERY 6 MONTHS AMGEN [Suspect]

REACTIONS (1)
  - Arthralgia [None]
